FAERS Safety Report 9515316 (Version 2)
Quarter: 2013Q3

REPORT INFORMATION
  Report Type: Spontaneous
  Country: US (occurrence: US)
  Receive Date: 20130911
  Receipt Date: 20130913
  Transmission Date: 20140515
  Serious: No
  Sender: FDA-Public Use
  Company Number: US-009507513-1308USA014052

PATIENT
  Age: 42 Year
  Sex: Female

DRUGS (4)
  1. GANIRELIX ACETATE INJECTION [Suspect]
     Indication: IN VITRO FERTILISATION
     Dosage: 250MCG/DAY FOR 5-10 DAYS
     Dates: start: 201206
  2. GANIRELIX ACETATE INJECTION [Suspect]
     Dosage: 250MCG/DAY FOR 5-10 DAYS
     Dates: start: 201206
  3. MENOPUR [Concomitant]
  4. GONAL-F [Concomitant]
     Dosage: 900 IU PEN

REACTIONS (3)
  - Injection site pain [Recovered/Resolved]
  - Needle issue [Unknown]
  - Injection site erythema [Recovered/Resolved]
